FAERS Safety Report 24890619 (Version 1)
Quarter: 2025Q1

REPORT INFORMATION
  Report Type: Spontaneous
  Country: AU (occurrence: AU)
  Receive Date: 20250127
  Receipt Date: 20250127
  Transmission Date: 20250409
  Serious: Yes (Hospitalization)
  Sender: MYLAN
  Company Number: AU-MYLANLABS-2025M1006939

PATIENT
  Sex: Male
  Weight: 89.7 kg

DRUGS (13)
  1. CLOZARIL [Suspect]
     Active Substance: CLOZAPINE
     Indication: Schizophrenia
     Route: 048
     Dates: start: 20071211
  2. CLOZARIL [Suspect]
     Active Substance: CLOZAPINE
     Dosage: 800 MILLIGRAM, PM (AT NIGHT)
     Route: 048
     Dates: start: 202310
  3. CLOZARIL [Suspect]
     Active Substance: CLOZAPINE
     Route: 048
     Dates: start: 202311, end: 20240119
  4. ARIPIPRAZOLE [Concomitant]
     Active Substance: ARIPIPRAZOLE
     Indication: Schizophrenia
     Route: 065
  5. ARIPIPRAZOLE [Concomitant]
     Active Substance: ARIPIPRAZOLE
     Dosage: 30 MILLIGRAM, AM (1.5 TABLET IN MORNING)
     Route: 048
  6. MIRTAZAPINE [Concomitant]
     Active Substance: MIRTAZAPINE
     Indication: Affective disorder
     Dosage: 15 MILLIGRAM, PM (AT NIGHT)
     Route: 048
  7. ESCITALOPRAM [Concomitant]
     Active Substance: ESCITALOPRAM OXALATE
     Indication: Affective disorder
     Route: 065
  8. ESCITALOPRAM [Concomitant]
     Active Substance: ESCITALOPRAM OXALATE
     Dosage: 20 MILLIGRAM, AM (IN MORNING)
     Route: 048
  9. QUETIAPINE [Concomitant]
     Active Substance: QUETIAPINE
     Indication: Agitation
     Dosage: 75 MILLIGRAM, BID (75 MILLIGRAM IN MORNING AND 75 MILLIGRAM IN MIDDAY)
     Route: 048
  10. QUETIAPINE [Concomitant]
     Active Substance: QUETIAPINE
     Indication: Anxiety
     Route: 048
  11. MOVICOL [Concomitant]
     Active Substance: POLYETHYLENE GLYCOL 3350\POTASSIUM CHLORIDE\SODIUM BICARBONATE\SODIUM CHLORIDE
     Indication: Constipation
     Dosage: 2 SACHET, AM (DAILY IN MORNING)
     Route: 048
  12. VALPROATE [Concomitant]
     Active Substance: VALPROIC ACID
     Route: 065
  13. DOCUSATE SODIUM\SENNOSIDE B [Concomitant]
     Active Substance: DOCUSATE SODIUM\SENNOSIDE B
     Route: 065

REACTIONS (12)
  - Intestinal obstruction [Unknown]
  - Anxiety [Not Recovered/Not Resolved]
  - Delusion [Unknown]
  - Paranoia [Unknown]
  - Mental impairment [Unknown]
  - Depressed mood [Unknown]
  - Panic attack [Unknown]
  - Poor quality sleep [Unknown]
  - Tachycardia [Unknown]
  - Weight decreased [Unknown]
  - Abdominal pain [Unknown]
  - Abdominal distension [Unknown]
